FAERS Safety Report 24422707 (Version 1)
Quarter: 2024Q4

REPORT INFORMATION
  Report Type: Spontaneous
  Country: IN (occurrence: IN)
  Receive Date: 20241010
  Receipt Date: 20241010
  Transmission Date: 20250115
  Serious: Yes (Other)
  Sender: PFIZER
  Company Number: IN-PFIZER INC-PV202400116513

PATIENT
  Age: 45 Year
  Sex: Male

DRUGS (2)
  1. LORLATINIB [Suspect]
     Active Substance: LORLATINIB
     Indication: Lung adenocarcinoma
     Dosage: 100 MG, 1X/DAY (0-1-0 FOR 6 WEEKS)
     Route: 048
     Dates: start: 2024
  2. LORLATINIB [Suspect]
     Active Substance: LORLATINIB
     Dosage: 50 MG, 1X/DAY (0-1-0 FOR 6 WEEKS)
     Route: 048
     Dates: start: 2024

REACTIONS (2)
  - Eye operation [Unknown]
  - Blindness [Unknown]
